FAERS Safety Report 4744215-1 (Version None)
Quarter: 2005Q3

REPORT INFORMATION
  Report Type: 
  Country: None (occurrence: None)
  Receive Date: 20050812
  Receipt Date: 20050215
  Transmission Date: 20060218
  Serious: Yes (Other)
  Sender: FDA-Public Use
  Company Number: 2005UW03937

PATIENT
  Age: 83 Year
  Sex: Female

DRUGS (3)
  1. TOPROL-XL [Suspect]
     Indication: HYPERTENSION
     Route: 048
  2. TOPAMAX [Suspect]
  3. NORVASC [Concomitant]

REACTIONS (3)
  - DRUG DISPENSING ERROR [None]
  - HYPERTENSION [None]
  - MEDICATION ERROR [None]
